FAERS Safety Report 4358874-9 (Version None)
Quarter: 2004Q2

REPORT INFORMATION
  Report Type: 
  Country: None (occurrence: None)
  Receive Date: 20040512
  Receipt Date: 20040423
  Transmission Date: 20050107
  Serious: Yes (Death)
  Sender: FDA-Public Use
  Company Number: JP_040403049

PATIENT
  Age: 71 Year
  Sex: Male

DRUGS (3)
  1. VANCOMYCIN [Suspect]
     Indication: STAPHYLOCOCCAL SEPSIS
     Dosage: 2000 MG DAY
     Route: 042
     Dates: start: 20040404, end: 20040408
  2. SULPERAZON [Concomitant]
  3. CARBENIN [Concomitant]

REACTIONS (4)
  - DISEASE PROGRESSION [None]
  - HEPATITIS [None]
  - PLATELET COUNT DECREASED [None]
  - STAPHYLOCOCCAL SEPSIS [None]
